FAERS Safety Report 4452003-9 (Version None)
Quarter: 2004Q3

REPORT INFORMATION
  Report Type: 
  Country: None (occurrence: None)
  Receive Date: 20040915
  Receipt Date: 20040915
  Transmission Date: 20050211
  Serious: Yes (Hospitalization)
  Sender: FDA-Public Use
  Company Number: None

PATIENT
  Sex: Female
  Weight: 79.3795 kg

DRUGS (5)
  1. NEURONTIN [Suspect]
     Dosage: PO [PRIOR TO ADMISSION]
  2. ZETIA [Concomitant]
  3. HYDROCODONE [Concomitant]
  4. CELEBREX [Concomitant]
  5. MIRAPEX [Concomitant]

REACTIONS (3)
  - ASTHENIA [None]
  - CHILLS [None]
  - NAUSEA [None]
